FAERS Safety Report 9692648 (Version 2)
Quarter: 2014Q1

REPORT INFORMATION
  Report Type: Spontaneous
  Country: US (occurrence: US)
  Receive Date: 20131118
  Receipt Date: 20140110
  Transmission Date: 20141002
  Serious: Yes (Other)
  Sender: FDA-Public Use
  Company Number: PHEH2013US023859

PATIENT
  Age: 43 Year
  Sex: Female

DRUGS (3)
  1. TASIGNA [Suspect]
     Indication: CHRONIC MYELOID LEUKAEMIA
     Route: 048
  2. TASIGNA [Suspect]
     Dosage: 150 MG, BID
     Route: 048
     Dates: start: 201302, end: 201303
  3. TASIGNA [Suspect]
     Dosage: 400 MG, PER DAY
     Dates: start: 201305, end: 20131121

REACTIONS (4)
  - Pancreatitis [Unknown]
  - Lipase increased [Recovered/Resolved]
  - Blood creatine phosphokinase increased [Unknown]
  - Myalgia [Recovering/Resolving]
